FAERS Safety Report 15110805 (Version 1)
Quarter: 2018Q3

REPORT INFORMATION
  Report Type: Spontaneous
  Country: US (occurrence: US)
  Receive Date: 20180705
  Receipt Date: 20180705
  Transmission Date: 20181010
  Serious: Yes (Death)
  Sender: FDA-Public Use
  Company Number: US-UNITED THERAPEUTICS-UNT-2018-009975

PATIENT
  Age: 70 Year
  Sex: Male
  Weight: 91.16 kg

DRUGS (1)
  1. TYVASO [Suspect]
     Active Substance: TREPROSTINIL
     Indication: PULMONARY ARTERIAL HYPERTENSION
     Dosage: 18 ? 54 MICROGRAMS, QID
     Dates: start: 20180328

REACTIONS (1)
  - Death [Fatal]

NARRATIVE: CASE EVENT DATE: 20180629
